FAERS Safety Report 17883137 (Version 2)
Quarter: 2020Q2

REPORT INFORMATION
  Report Type: Spontaneous
  Country: BE (occurrence: BE)
  Receive Date: 20200611
  Receipt Date: 20200625
  Transmission Date: 20200714
  Serious: Yes (Disabling, Other)
  Sender: FDA-Public Use
  Company Number: BE-BEH-2020118245

PATIENT
  Age: 29 Year
  Sex: Female
  Weight: 60.2 kg

DRUGS (5)
  1. NACL [Concomitant]
     Active Substance: SODIUM CHLORIDE
     Indication: DEHYDRATION
     Dosage: 1000 MILLILITER
     Route: 042
  2. PRIVIGEN [Suspect]
     Active Substance: HUMAN IMMUNOGLOBULIN G
     Indication: MILLER FISHER SYNDROME
     Dosage: 25 GRAM, QD
     Route: 042
     Dates: start: 20200218, end: 20200222
  3. DAFALGAN [Concomitant]
     Active Substance: ACETAMINOPHEN
     Indication: HEADACHE
     Dosage: 1 GRAM
     Route: 048
  4. FRAXIPARINE [Concomitant]
     Active Substance: NADROPARIN CALCIUM
     Indication: THROMBOSIS PROPHYLAXIS
     Dosage: 3800 INTERNATIONAL UNIT
     Route: 058
  5. LITICAN [ALIZAPRIDE HYDROCHLORIDE] [Concomitant]
     Indication: NAUSEA
     Dosage: 50 MILLIGRAM
     Route: 042

REACTIONS (7)
  - Nuchal rigidity [Recovered/Resolved]
  - Meningitis aseptic [Recovered/Resolved]
  - Headache [Recovered/Resolved]
  - Nausea [Recovered/Resolved]
  - Pleocytosis [Recovered/Resolved]
  - Dyshidrotic eczema [Recovered/Resolved]
  - Mental status changes [Recovered/Resolved]
